FAERS Safety Report 17144784 (Version 1)
Quarter: 2019Q4

REPORT INFORMATION
  Report Type: Spontaneous
  Country: US (occurrence: US)
  Receive Date: 20191212
  Receipt Date: 20191212
  Transmission Date: 20200122
  Serious: No
  Sender: FDA-Public Use
  Company Number: US-NOVEN PHARMACEUTICALS, INC.-US2019000174

PATIENT

DRUGS (4)
  1. ESTRADIOL(GP) [Suspect]
     Active Substance: ESTRADIOL
     Indication: HOT FLUSH
     Dosage: 0.037 MG, 2/WK
     Route: 062
     Dates: start: 20190316, end: 2019
  2. ESTRADIOL(GP) [Suspect]
     Active Substance: ESTRADIOL
     Indication: NIGHT SWEATS
  3. PROGESTERONE. [Concomitant]
     Active Substance: PROGESTERONE
  4. TESTOSTERONE. [Concomitant]
     Active Substance: TESTOSTERONE
     Route: 061

REACTIONS (6)
  - Drug ineffective [Recovered/Resolved]
  - Hot flush [Recovered/Resolved]
  - Product adhesion issue [Recovered/Resolved]
  - Insomnia [Recovered/Resolved]
  - Therapy cessation [Not Recovered/Not Resolved]
  - Breast tenderness [Not Recovered/Not Resolved]

NARRATIVE: CASE EVENT DATE: 2019
